FAERS Safety Report 6722728-0 (Version None)
Quarter: 2010Q2

REPORT INFORMATION
  Report Type: 
  Country: None (occurrence: None)
  Receive Date: 20100512
  Receipt Date: 20100503
  Transmission Date: 20101027
  Serious: Yes (Other)
  Sender: FDA-Public Use
  Company Number: GB-MERCK-1005GBR00007

PATIENT
  Age: 46 Year
  Sex: Female

DRUGS (6)
  1. TRUSOPT [Suspect]
     Route: 047
  2. COSOPT [Suspect]
     Route: 047
  3. TIMOLOL [Concomitant]
     Route: 065
  4. ESTROGENS (UNSPECIFIED) [Concomitant]
     Route: 065
  5. LATANOPROST [Concomitant]
     Route: 065
  6. BRIMONIDINE TARTRATE [Concomitant]
     Route: 065

REACTIONS (6)
  - AORTIC DILATATION [None]
  - DRUG INEFFECTIVE [None]
  - GLAUCOMA SURGERY [None]
  - LENS DISLOCATION [None]
  - PALPITATIONS [None]
  - VITREOUS DISORDER [None]
